FAERS Safety Report 7605833-6 (Version None)
Quarter: 2011Q3

REPORT INFORMATION
  Report Type: 
  Country: None (occurrence: None)
  Receive Date: 20110712
  Receipt Date: 20110712
  Transmission Date: 20111222
  Serious: Yes (Hospitalization)
  Sender: FDA-Public Use
  Company Number: None

PATIENT
  Age: 56 Year
  Sex: Female
  Weight: 83.9154 kg

DRUGS (1)
  1. LIPITOR [Suspect]
     Indication: BLOOD CHOLESTEROL INCREASED
     Dosage: 1 TABET 1 X A DAY PO
     Route: 048
     Dates: start: 20100301, end: 20110620

REACTIONS (4)
  - MUSCLE ENZYME INCREASED [None]
  - SYNCOPE [None]
  - MIDDLE INSOMNIA [None]
  - MUSCLE SPASMS [None]
